FAERS Safety Report 6855445-7 (Version None)
Quarter: 2010Q3

REPORT INFORMATION
  Report Type: 
  Country: None (occurrence: None)
  Receive Date: 20100719
  Receipt Date: 20100709
  Transmission Date: 20110219
  Serious: No
  Sender: FDA-Public Use
  Company Number: 2009BI010840

PATIENT
  Sex: Female

DRUGS (3)
  1. TYSABRI [Suspect]
     Indication: MULTIPLE SCLEROSIS
     Route: 042
     Dates: start: 20090116
  2. LEXAPRO [Concomitant]
     Indication: EMOTIONAL DISORDER
     Dates: start: 20030101
  3. IV MEDICATION [NOS] [Concomitant]
     Indication: CARDIAC STRESS TEST

REACTIONS (21)
  - BALANCE DISORDER [None]
  - CHEST PAIN [None]
  - DYSPEPSIA [None]
  - DYSPNOEA [None]
  - FALL [None]
  - HEADACHE [None]
  - HYPERTENSION [None]
  - INFLUENZA LIKE ILLNESS [None]
  - INFUSION SITE HAEMATOMA [None]
  - INFUSION SITE PAIN [None]
  - LIBIDO DECREASED [None]
  - LOGORRHOEA [None]
  - MEMORY IMPAIRMENT [None]
  - MIGRAINE [None]
  - PAIN [None]
  - PAIN OF SKIN [None]
  - PAROSMIA [None]
  - SKELETAL INJURY [None]
  - URINARY INCONTINENCE [None]
  - VOMITING [None]
  - VULVOVAGINAL DRYNESS [None]
